FAERS Safety Report 8052512-X (Version None)
Quarter: 2012Q1

REPORT INFORMATION
  Report Type: 
  Country: None (occurrence: None)
  Receive Date: 20120118
  Receipt Date: 20120111
  Transmission Date: 20120608
  Serious: Yes (Other)
  Sender: FDA-Public Use
  Company Number: FR-PFIZER INC-2011301098

PATIENT
  Age: 87 Year
  Sex: Female

DRUGS (7)
  1. CLOXACILLIN SODIUM [Concomitant]
  2. NOREPINEPHRINE BITARTRATE [Concomitant]
  3. ARGATROBAN [Suspect]
     Dosage: 1.2 MCG/KG/MIN  1X/DAY
     Route: 042
     Dates: start: 20111204, end: 20111204
  4. ARGATROBAN [Suspect]
     Indication: HEPARIN-INDUCED THROMBOCYTOPENIA
     Dosage: 2 MCG/KG/MIN, 1X/DAY
     Route: 042
     Dates: start: 20111204, end: 20111204
  5. ARGATROBAN [Suspect]
     Dosage: 0.4 MCG/KG/MIN, 1X/DAY
     Route: 042
     Dates: start: 20111204, end: 20111204
  6. DOBUTAMINE HYDROCHLORIDE [Concomitant]
  7. RANITIDINE HYDROCHLORIDE [Concomitant]

REACTIONS (2)
  - BLOOD FIBRINOGEN ABNORMAL [None]
  - PROTHROMBIN TIME SHORTENED [None]
